FAERS Safety Report 6891477-0 (Version None)
Quarter: 2010Q3

REPORT INFORMATION
  Report Type: 
  Country: None (occurrence: None)
  Receive Date: 20100731
  Receipt Date: 20070628
  Transmission Date: 20110219
  Serious: No
  Sender: FDA-Public Use
  Company Number: US-PFIZER INC-2007053625

PATIENT
  Sex: Male

DRUGS (3)
  1. AMLODIPINE [Suspect]
  2. ENALAPRIL [Suspect]
  3. ATENOLOL [Suspect]

REACTIONS (1)
  - DRUG INEFFECTIVE [None]
